FAERS Safety Report 9433770 (Version 1)
Quarter: 2013Q3

REPORT INFORMATION
  Report Type: Spontaneous
  Country: US (occurrence: US)
  Receive Date: 20130731
  Receipt Date: 20130731
  Transmission Date: 20140515
  Serious: Yes (Other)
  Sender: FDA-Public Use
  Company Number: CHPA2013US012086

PATIENT
  Sex: Male

DRUGS (1)
  1. PREVACID [Suspect]
     Dosage: 15 MG, QD
     Route: 048
     Dates: start: 20130728, end: 20130728

REACTIONS (4)
  - Pulse abnormal [Not Recovered/Not Resolved]
  - Swelling [Not Recovered/Not Resolved]
  - Pruritus generalised [Not Recovered/Not Resolved]
  - Feeling abnormal [Not Recovered/Not Resolved]
